FAERS Safety Report 20652756 (Version 3)
Quarter: 2022Q2

REPORT INFORMATION
  Report Type: Spontaneous
  Country: JP (occurrence: JP)
  Receive Date: 20220330
  Receipt Date: 20220421
  Transmission Date: 20220720
  Serious: Yes (Death, Other)
  Sender: FDA-Public Use
  Company Number: JP-NBI-J202205668BIPI

PATIENT
  Age: 86 Year
  Sex: Female

DRUGS (1)
  1. IDARUCIZUMAB [Suspect]
     Active Substance: IDARUCIZUMAB
     Indication: Procoagulant therapy
     Route: 042
     Dates: start: 20220324, end: 20220324

REACTIONS (2)
  - Coagulopathy [Fatal]
  - Septic shock [Fatal]

NARRATIVE: CASE EVENT DATE: 20220325
